FAERS Safety Report 13131075 (Version 2)
Quarter: 2017Q1

REPORT INFORMATION
  Report Type: Spontaneous
  Country: AU (occurrence: AU)
  Receive Date: 20170119
  Receipt Date: 20170206
  Transmission Date: 20170428
  Serious: Yes (Hospitalization)
  Sender: FDA-Public Use
  Company Number: AU-HTU-2017AU012865

PATIENT
  Age: 49 Year
  Sex: Female

DRUGS (5)
  1. GLUCOSE [Suspect]
     Active Substance: DEXTROSE
     Dosage: 250 ML, UNK
     Route: 042
     Dates: start: 20160829, end: 20161031
  2. CAPECITABINE. [Suspect]
     Active Substance: CAPECITABINE
     Dosage: 3000 MG, UNK
     Route: 048
     Dates: start: 20160829, end: 20161031
  3. DEXAMETHASONE. [Suspect]
     Active Substance: DEXAMETHASONE
     Dosage: 8 MG, UNK
     Route: 048
     Dates: start: 20160829, end: 20161031
  4. PALONOSETRON HCL BRAND UNKNOWN [Suspect]
     Active Substance: PALONOSETRON HYDROCHLORIDE
     Indication: PROPHYLAXIS OF NAUSEA AND VOMITING
     Dosage: 0.25 MG, UNK
     Dates: start: 20160829, end: 20160831
  5. OXALIPLATIN. [Suspect]
     Active Substance: OXALIPLATIN
     Dosage: 235 MG, UNK
     Route: 042
     Dates: start: 20160829, end: 20160831

REACTIONS (4)
  - Muscle twitching [Unknown]
  - Ataxia [Unknown]
  - Dystonia [Unknown]
  - Irritability [Unknown]

NARRATIVE: CASE EVENT DATE: 20161031
